FAERS Safety Report 19756501 (Version 1)
Quarter: 2021Q3

REPORT INFORMATION
  Report Type: Report from Study
  Country: None (occurrence: DE)
  Receive Date: 20210828
  Receipt Date: 20210828
  Transmission Date: 20211014
  Serious: Yes (Hospitalization)
  Sender: FDA-Public Use
  Company Number: DE-ABBVIE-21K-062-4056995-00

PATIENT
  Age: 74 Year
  Sex: Female

DRUGS (1)
  1. RINVOQ [Suspect]
     Active Substance: UPADACITINIB
     Indication: RHEUMATOID ARTHRITIS
     Route: 048
     Dates: start: 20200915

REACTIONS (6)
  - Mental disorder [Recovered/Resolved]
  - Rash [Unknown]
  - Blood pressure fluctuation [Recovered/Resolved]
  - Helicobacter infection [Recovered/Resolved]
  - Rash [Recovered/Resolved]
  - Weight decreased [Not Recovered/Not Resolved]

NARRATIVE: CASE EVENT DATE: 202011
